FAERS Safety Report 23677866 (Version 1)
Quarter: 2024Q1

REPORT INFORMATION
  Report Type: Spontaneous
  Country: US (occurrence: US)
  Receive Date: 20240327
  Receipt Date: 20240327
  Transmission Date: 20240410
  Serious: Yes (Other)
  Sender: FDA-Public Use
  Company Number: US-MYLANLABS-2024M1028101

PATIENT
  Age: 40 Year
  Sex: Male

DRUGS (5)
  1. TEMOZOLOMIDE [Suspect]
     Active Substance: TEMOZOLOMIDE
     Indication: Uveal melanoma
     Dosage: UNK
     Route: 065
  2. CISPLATIN [Suspect]
     Active Substance: CISPLATIN
     Indication: Uveal melanoma
     Dosage: UNK; SYSTEMIC THERAPY USING TRANSARTERIAL CHEMOEMBOLIZATION
     Route: 013
  3. BEVACIZUMAB [Suspect]
     Active Substance: BEVACIZUMAB
     Indication: Uveal melanoma
     Dosage: UNK
     Route: 065
  4. PEMBROLIZUMAB [Suspect]
     Active Substance: PEMBROLIZUMAB
     Indication: Uveal melanoma
     Dosage: UNK
     Route: 065
  5. FOTEMUSTINE [Suspect]
     Active Substance: FOTEMUSTINE
     Indication: Uveal melanoma
     Dosage: UNK; SYSTEMIC THERAPY USING TRANSARTERIAL CHEMOEMBOLIZATION
     Route: 013

REACTIONS (2)
  - Drug ineffective [Unknown]
  - Disease progression [Unknown]
